FAERS Safety Report 9097668 (Version 1)
Quarter: 2013Q1

REPORT INFORMATION
  Report Type: Spontaneous
  Country: US (occurrence: US)
  Receive Date: 20130212
  Receipt Date: 20130212
  Transmission Date: 20140127
  Serious: No
  Sender: FDA-Public Use
  Company Number: US-009507513-1302USA004184

PATIENT
  Sex: Female

DRUGS (3)
  1. ZETIA [Suspect]
     Dosage: 10 MG, UNK
     Route: 048
  2. DEXILANT [Suspect]
  3. CITRACAL [Concomitant]

REACTIONS (1)
  - Gastrooesophageal reflux disease [Unknown]
